FAERS Safety Report 11593683 (Version 1)
Quarter: 2015Q4

REPORT INFORMATION
  Report Type: Report from Study
  Country: IN (occurrence: IN)
  Receive Date: 20151005
  Receipt Date: 20151005
  Transmission Date: 20160304
  Serious: Yes (Death)
  Sender: FDA-Public Use
  Company Number: IN-GLAXOSMITHKLINE-IN2015GSK141539

PATIENT
  Age: 58 Year
  Sex: Female

DRUGS (1)
  1. ELTROMBOPAG [Suspect]
     Active Substance: ELTROMBOPAG
     Indication: IMMUNE THROMBOCYTOPENIC PURPURA
     Dosage: 50 MG, 1 TABLET
     Route: 048
     Dates: start: 201507

REACTIONS (1)
  - Thrombosis [Fatal]
